FAERS Safety Report 9759646 (Version 2)
Quarter: 2015Q3

REPORT INFORMATION
  Report Type: Spontaneous
  Country: US (occurrence: US)
  Receive Date: 20131216
  Receipt Date: 20150806
  Transmission Date: 20151125
  Serious: No
  Sender: FDA-Public Use
  Company Number: US-GILEAD-2010-0028499

PATIENT
  Age: 78 Year
  Sex: Female

DRUGS (19)
  1. ACTONEL [Concomitant]
     Active Substance: RISEDRONATE SODIUM
  2. SALSALATE. [Concomitant]
     Active Substance: SALSALATE
  3. LETAIRIS [Suspect]
     Active Substance: AMBRISENTAN
     Indication: PULMONARY ARTERIAL HYPERTENSION
     Route: 048
     Dates: start: 20100218, end: 20100407
  4. SANCTURA [Concomitant]
     Active Substance: TROSPIUM CHLORIDE
  5. COQ [Concomitant]
  6. GINKOBA [Concomitant]
     Active Substance: GINKGO
  7. PILOCARPINE. [Concomitant]
     Active Substance: PILOCARPINE
  8. NORVASC [Concomitant]
     Active Substance: AMLODIPINE BESYLATE
  9. PLAQUENIL [Concomitant]
     Active Substance: HYDROXYCHLOROQUINE SULFATE
  10. VITAMIN C [Concomitant]
     Active Substance: ASCORBIC ACID
  11. VITAMIN E [Concomitant]
     Active Substance: .ALPHA.-TOCOPHEROL
  12. PREDNISONE. [Concomitant]
     Active Substance: PREDNISONE
  13. TRANDATE [Concomitant]
     Active Substance: LABETALOL HYDROCHLORIDE
  14. FERROUS SULFATE [Concomitant]
     Active Substance: FERROUS SULFATE\FERROUS SULFATE, DRIED
  15. PARACETAMOL/HYDROCODONE BITARTRATE [Concomitant]
  16. SYNTHROID [Concomitant]
     Active Substance: LEVOTHYROXINE SODIUM
  17. NEURONTIN [Concomitant]
     Active Substance: GABAPENTIN
  18. ASA [Concomitant]
     Active Substance: ASPIRIN
  19. ARICEPT [Concomitant]
     Active Substance: DONEPEZIL HYDROCHLORIDE

REACTIONS (2)
  - Oedema peripheral [Recovering/Resolving]
  - Rash papular [Recovering/Resolving]

NARRATIVE: CASE EVENT DATE: 20100220
